FAERS Safety Report 7272642-X (Version None)
Quarter: 2011Q1

REPORT INFORMATION
  Report Type: 
  Country: None (occurrence: None)
  Receive Date: 20110203
  Receipt Date: 20110128
  Transmission Date: 20110831
  Serious: Yes (Other)
  Sender: FDA-Public Use
  Company Number: BE-ASTRAZENECA-2011SE05333

PATIENT
  Age: 61 Year
  Sex: Male
  Weight: 72 kg

DRUGS (11)
  1. CO-BISOPROLOL [Concomitant]
     Dosage: 10/25 MG
  2. ALDACTONE [Concomitant]
  3. SIMVASTATIN [Concomitant]
  4. BELSAR [Concomitant]
  5. METFORMAX [Concomitant]
     Dosage: 1 1/2
  6. ZYLORIC [Concomitant]
  7. SEROQUEL [Suspect]
     Route: 048
     Dates: start: 20100609
  8. LAMBIPOL [Concomitant]
  9. DEPAKENE [Suspect]
     Route: 065
  10. LIPANTHYL [Concomitant]
  11. TICLID [Concomitant]

REACTIONS (2)
  - NEUTROPENIA [None]
  - ANAEMIA [None]
